FAERS Safety Report 21336191 (Version 1)
Quarter: 2022Q3

REPORT INFORMATION
  Report Type: Spontaneous
  Country: US (occurrence: None)
  Receive Date: 20220914
  Receipt Date: 20220914
  Transmission Date: 20221027
  Serious: Yes (Hospitalization)
  Sender: FDA-Public Use
  Company Number: None

PATIENT
  Sex: Female

DRUGS (9)
  1. AVONEX [Suspect]
     Active Substance: INTERFERON BETA-1A
     Indication: Multiple sclerosis
     Route: 030
     Dates: start: 20150630
  2. ASPIRIN CHW [Concomitant]
  3. CALTRATE [Concomitant]
     Active Substance: CALCIUM CARBONATE
  4. HYDROCHLOROT TAB [Concomitant]
  5. MULTIVITAL TAB [Concomitant]
  6. QUINAPRIL TAB [Concomitant]
  7. SYNTHROID TAB [Concomitant]
  8. TIZANIDINE TAB [Concomitant]
  9. VESICARE TAB [Concomitant]

REACTIONS (2)
  - Spinal operation [None]
  - Therapy interrupted [None]
